FAERS Safety Report 7226564-0 (Version None)
Quarter: 2011Q1

REPORT INFORMATION
  Report Type: 
  Country: None (occurrence: None)
  Receive Date: 20110114
  Receipt Date: 20110103
  Transmission Date: 20110831
  Serious: Yes (Other)
  Sender: FDA-Public Use
  Company Number: US-CELGENEUS-163-21880-11010409

PATIENT
  Sex: Female

DRUGS (2)
  1. REVLIMID [Suspect]
     Route: 048
  2. VELCADE [Suspect]
     Route: 065

REACTIONS (3)
  - DIARRHOEA [None]
  - CONSTIPATION [None]
  - AMNESIA [None]
